FAERS Safety Report 9690248 (Version 1)
Quarter: 2013Q4

REPORT INFORMATION
  Report Type: Spontaneous
  Country: US (occurrence: None)
  Receive Date: 20131114
  Receipt Date: 20131114
  Transmission Date: 20140711
  Serious: Yes (Disabling)
  Sender: FDA-Public Use
  Company Number: None

PATIENT
  Age: 89 Year
  Sex: Female
  Weight: 71.22 kg

DRUGS (1)
  1. ALBUTEROL SULFATE [Suspect]
     Dosage: INHALATION SOLUTION ?TWICE DAILY ?TAKEN BY MOUTH
     Dates: start: 20131007, end: 20131025

REACTIONS (4)
  - Asthenia [None]
  - Dyspnoea [None]
  - Decreased appetite [None]
  - Malaise [None]
